FAERS Safety Report 13612669 (Version 1)
Quarter: 2017Q2

REPORT INFORMATION
  Report Type: Spontaneous
  Country: US (occurrence: US)
  Receive Date: 20170605
  Receipt Date: 20170605
  Transmission Date: 20170830
  Serious: Yes (Hospitalization, Other)
  Sender: FDA-Public Use
  Company Number: US-NOVOPROD-548037

PATIENT
  Age: 60 Year
  Sex: Male
  Weight: 90.7 kg

DRUGS (2)
  1. TRESIBA [Concomitant]
     Active Substance: INSULIN DEGLUDEC
     Indication: TYPE 2 DIABETES MELLITUS
     Route: 058
  2. VICTOZA [Suspect]
     Active Substance: LIRAGLUTIDE
     Indication: TYPE 2 DIABETES MELLITUS
     Dosage: 1.8 MG QD
     Route: 058
     Dates: start: 2016, end: 201703

REACTIONS (2)
  - Hepatic failure [Recovered/Resolved]
  - Gallbladder perforation [Recovered/Resolved]

NARRATIVE: CASE EVENT DATE: 201703
